FAERS Safety Report 6232425-6 (Version None)
Quarter: 2009Q2

REPORT INFORMATION
  Report Type: 
  Country: None (occurrence: None)
  Receive Date: 20090615
  Receipt Date: 20090609
  Transmission Date: 20091009
  Serious: Yes (Other)
  Sender: FDA-Public Use
  Company Number: OSCN-PR-0906S-0298

PATIENT
  Sex: Male

DRUGS (5)
  1. OMNISCAN [Suspect]
     Indication: DRUG USE FOR UNKNOWN INDICATION
     Dosage: SINGLE DOSE ; SINGLE DOSE ; SINGLE DOSE ; SINGLE DOSE ; SINGLE DOSE
     Dates: start: 20051216, end: 20051216
  2. OMNISCAN [Suspect]
     Indication: DRUG USE FOR UNKNOWN INDICATION
     Dosage: SINGLE DOSE ; SINGLE DOSE ; SINGLE DOSE ; SINGLE DOSE ; SINGLE DOSE
     Dates: start: 20060130, end: 20060130
  3. OMNISCAN [Suspect]
     Indication: DRUG USE FOR UNKNOWN INDICATION
     Dosage: SINGLE DOSE ; SINGLE DOSE ; SINGLE DOSE ; SINGLE DOSE ; SINGLE DOSE
     Dates: start: 20060215, end: 20060215
  4. OMNISCAN [Suspect]
     Indication: DRUG USE FOR UNKNOWN INDICATION
     Dosage: SINGLE DOSE ; SINGLE DOSE ; SINGLE DOSE ; SINGLE DOSE ; SINGLE DOSE
     Dates: start: 20060727, end: 20060727
  5. MULTIHANCE [Concomitant]

REACTIONS (1)
  - NEPHROGENIC SYSTEMIC FIBROSIS [None]
